FAERS Safety Report 17521861 (Version 2)
Quarter: 2020Q2

REPORT INFORMATION
  Report Type: Spontaneous
  Country: JP (occurrence: JP)
  Receive Date: 20200310
  Receipt Date: 20200521
  Transmission Date: 20200713
  Serious: Yes (Death, Hospitalization, Other)
  Sender: FDA-Public Use
  Company Number: JP-PFIZER INC-2020098296

PATIENT
  Age: 7 Decade
  Sex: Female

DRUGS (4)
  1. DOXORUBICIN HCL [Suspect]
     Active Substance: DOXORUBICIN HYDROCHLORIDE
     Indication: ANGIOIMMUNOBLASTIC T-CELL LYMPHOMA
     Dosage: UNK, CYCLIC
     Dates: start: 20190826
  2. VINCRISTINE [Suspect]
     Active Substance: VINCRISTINE
     Indication: ANGIOIMMUNOBLASTIC T-CELL LYMPHOMA
     Dosage: UNK, CYCLIC
     Dates: start: 20190826
  3. CYCLOPHOSPHAMIDE. [Suspect]
     Active Substance: CYCLOPHOSPHAMIDE
     Indication: ANGIOIMMUNOBLASTIC T-CELL LYMPHOMA
     Dosage: UNK, CYCLIC
     Dates: start: 20190826
  4. PREDNISOLONE. [Suspect]
     Active Substance: PREDNISOLONE
     Indication: ANGIOIMMUNOBLASTIC T-CELL LYMPHOMA
     Dosage: UNK, CYCLIC
     Dates: start: 20190826

REACTIONS (9)
  - Acidosis [Unknown]
  - Neoplasm progression [Fatal]
  - Toxic epidermal necrolysis [Recovering/Resolving]
  - Infection [Fatal]
  - Respiratory disorder [Unknown]
  - Haemophagocytic lymphohistiocytosis [Fatal]
  - Candida infection [Unknown]
  - Bacteraemia [Unknown]
  - Pneumonia [Unknown]

NARRATIVE: CASE EVENT DATE: 20191121
